FAERS Safety Report 8010901-3 (Version None)
Quarter: 2011Q4

REPORT INFORMATION
  Report Type: 
  Country: None (occurrence: None)
  Receive Date: 20111228
  Receipt Date: 20111219
  Transmission Date: 20120403
  Serious: Yes (Hospitalization)
  Sender: FDA-Public Use
  Company Number: AT-ABBOTT-11P-009-0877688-00

PATIENT
  Age: 63 Year
  Sex: Male

DRUGS (1)
  1. LEUPROLIDE ACETATE [Suspect]
     Indication: PROSTATE CANCER METASTATIC
     Route: 058
     Dates: start: 20100801

REACTIONS (7)
  - OVERDOSE [None]
  - ANGINA PECTORIS [None]
  - DIABETES MELLITUS [None]
  - MEDICATION ERROR [None]
  - LIPIDS INCREASED [None]
  - PLEURAL EFFUSION [None]
  - CATARACT [None]
